FAERS Safety Report 16877774 (Version 1)
Quarter: 2019Q4

REPORT INFORMATION
  Report Type: Report from Study
  Country: US (occurrence: US)
  Receive Date: 20191002
  Receipt Date: 20191002
  Transmission Date: 20200122
  Serious: Yes (Death, Other)
  Sender: FDA-Public Use
  Company Number: US-JNJFOC-20190814099

PATIENT
  Age: 67 Year
  Sex: Male

DRUGS (4)
  1. ASPRIN [Concomitant]
     Active Substance: ASPIRIN
  2. IMBRUVICA [Suspect]
     Active Substance: IBRUTINIB
     Indication: CHRONIC LYMPHOCYTIC LEUKAEMIA
     Dosage: 420 MG, QD
     Route: 048
     Dates: start: 20170228
  3. NITROGLYCERIN. [Concomitant]
     Active Substance: NITROGLYCERIN
  4. IMBRUVICA [Suspect]
     Active Substance: IBRUTINIB
     Route: 048
     Dates: start: 20170213, end: 20170805

REACTIONS (3)
  - Coronary artery disease [Fatal]
  - Acute myocardial infarction [Fatal]
  - Oesophageal achalasia [Unknown]

NARRATIVE: CASE EVENT DATE: 20190802
